FAERS Safety Report 6517530-9 (Version None)
Quarter: 2009Q4

REPORT INFORMATION
  Report Type: 
  Country: None (occurrence: None)
  Receive Date: 20091224
  Receipt Date: 20091211
  Transmission Date: 20100525
  Serious: Yes (Other)
  Sender: FDA-Public Use
  Company Number: CA-PURDUE-CAN-2009-0001039

PATIENT
  Age: 37 Year
  Sex: Female

DRUGS (4)
  1. OXYCONTIN [Suspect]
     Indication: PELVIC PAIN
  2. OXYCONTIN [Suspect]
     Indication: DRUG USE FOR UNKNOWN INDICATION
  3. PERCOCET [Suspect]
     Indication: PELVIC PAIN
  4. PERCOCET [Suspect]
     Indication: DRUG USE FOR UNKNOWN INDICATION

REACTIONS (13)
  - ABDOMINAL PAIN UPPER [None]
  - DIARRHOEA [None]
  - DRUG DEPENDENCE [None]
  - DRUG WITHDRAWAL SYNDROME [None]
  - FEELING OF DESPAIR [None]
  - HYPERHIDROSIS [None]
  - JUDGEMENT IMPAIRED [None]
  - NAUSEA [None]
  - RASH [None]
  - SOMNOLENCE [None]
  - SUBSTANCE ABUSE [None]
  - SUICIDAL IDEATION [None]
  - TREMOR [None]
